FAERS Safety Report 9919937 (Version 2)
Quarter: 2014Q3

REPORT INFORMATION
  Report Type: Spontaneous
  Country: AT (occurrence: AT)
  Receive Date: 20140224
  Receipt Date: 20140922
  Transmission Date: 20150326
  Serious: Yes (Hospitalization, Other)
  Sender: FDA-Public Use
  Company Number: AT-ELI_LILLY_AND_COMPANY-AT201402006076

PATIENT
  Age: 50 Year
  Sex: Female

DRUGS (14)
  1. UNASYN                             /00903602/ [Suspect]
     Active Substance: SULTAMICILLIN TOSYLATE
     Indication: PRODUCT USED FOR UNKNOWN INDICATION
     Dosage: 9000 MG, UNKNOWN
     Route: 065
     Dates: start: 20121120, end: 20121121
  2. DEPAKINE                           /00228502/ [Suspect]
     Active Substance: VALPROATE SODIUM
     Indication: PRODUCT USED FOR UNKNOWN INDICATION
     Dosage: 600 MG, UNKNOWN
     Route: 065
     Dates: start: 20121113, end: 20121115
  3. ZYPREXA [Suspect]
     Active Substance: OLANZAPINE
     Indication: MANIA
     Dosage: 20 MG, UNKNOWN
     Route: 065
     Dates: start: 20121020, end: 20121105
  4. ZYPREXA [Suspect]
     Active Substance: OLANZAPINE
     Dosage: 5 MG, UNKNOWN
     Route: 065
     Dates: start: 20121117, end: 20121118
  5. NOZINAN /00038603/ [Suspect]
     Active Substance: LEVOMEPROMAZINE
     Indication: PRODUCT USED FOR UNKNOWN INDICATION
     Dosage: 240 MG, UNKNOWN
     Route: 065
     Dates: start: 20121022, end: 20121024
  6. NOZINAN                            /00038603/ [Suspect]
     Active Substance: LEVOMEPROMAZINE
     Dosage: 360 MG, UNKNOWN
     Route: 065
     Dates: start: 20121025, end: 20121118
  7. PSYCHOPAX [Concomitant]
     Active Substance: DIAZEPAM
     Dosage: 20 MG, UNKNOWN
     Dates: start: 20121023, end: 20121120
  8. LOVENOX [Concomitant]
     Active Substance: ENOXAPARIN SODIUM
     Dosage: 40 MG, UNKNOWN
     Dates: start: 20121120
  9. DOMINAL (PROTHIPENDYL HYDROCHLORIDE) [Concomitant]
     Active Substance: PROTHIPENDYL HYDROCHLORIDE
     Dosage: 120 MG, UNKNOWN
     Route: 065
     Dates: start: 20121101, end: 20121113
  10. NEUPOGEN [Suspect]
     Active Substance: FILGRASTIM
     Dosage: 1 DF, UNKNOWN
     Dates: start: 20121122
  11. SOLIAN [Suspect]
     Active Substance: AMISULPRIDE
     Indication: PRODUCT USED FOR UNKNOWN INDICATION
     Dosage: 400 MG, UNKNOWN
     Route: 065
     Dates: start: 20121105, end: 20121117
  12. DEPAKINE                           /00228502/ [Suspect]
     Active Substance: VALPROATE SODIUM
     Dosage: 1000 MG, UNKNOWN
     Route: 065
     Dates: start: 20121116, end: 20121118
  13. ZYPREXA [Suspect]
     Active Substance: OLANZAPINE
     Dosage: 10 MG, UNKNOWN
     Dates: start: 20121106, end: 20121116
  14. SOLIAN [Suspect]
     Active Substance: AMISULPRIDE
     Dosage: 800 MG, UNKNOWN
     Route: 065
     Dates: start: 20121118, end: 20121118

REACTIONS (5)
  - Erythema [Recovered/Resolved]
  - Leukopenia [None]
  - Pyrexia [Recovered/Resolved]
  - Agranulocytosis [Recovered/Resolved]
  - Diarrhoea [Recovered/Resolved]

NARRATIVE: CASE EVENT DATE: 20121119
